FAERS Safety Report 25722137 (Version 1)
Quarter: 2025Q3

REPORT INFORMATION
  Report Type: Report from Study
  Country: EU (occurrence: EU)
  Receive Date: 20250825
  Receipt Date: 20250825
  Transmission Date: 20251020
  Serious: Yes (Life-Threatening, Other)
  Sender: CELLTRION
  Company Number: EU-SA-2025SA202899

PATIENT

DRUGS (17)
  1. RITUXIMAB [Suspect]
     Active Substance: RITUXIMAB
     Indication: Neuroblastoma recurrent
  2. RITUXIMAB [Suspect]
     Active Substance: RITUXIMAB
     Indication: Metastasis
  3. FLUDARABINE PHOSPHATE [Suspect]
     Active Substance: FLUDARABINE PHOSPHATE
     Indication: Neuroblastoma recurrent
  4. FLUDARABINE PHOSPHATE [Suspect]
     Active Substance: FLUDARABINE PHOSPHATE
     Indication: Stem cell transplant
  5. FLUDARABINE PHOSPHATE [Suspect]
     Active Substance: FLUDARABINE PHOSPHATE
     Indication: Metastasis
  6. THYMOCYTE IMMUNE GLOBULIN NOS [Suspect]
     Active Substance: THYMOCYTE IMMUNE GLOBULIN NOS
     Indication: Stem cell transplant
  7. THYMOCYTE IMMUNE GLOBULIN NOS [Suspect]
     Active Substance: THYMOCYTE IMMUNE GLOBULIN NOS
     Indication: Neuroblastoma recurrent
  8. THYMOCYTE IMMUNE GLOBULIN NOS [Suspect]
     Active Substance: THYMOCYTE IMMUNE GLOBULIN NOS
     Indication: Metastasis
  9. THIOTEPA [Suspect]
     Active Substance: THIOTEPA
     Indication: Neuroblastoma recurrent
  10. THIOTEPA [Suspect]
     Active Substance: THIOTEPA
     Indication: Stem cell transplant
  11. THIOTEPA [Suspect]
     Active Substance: THIOTEPA
     Indication: Metastasis
  12. TREOSULFAN [Suspect]
     Active Substance: TREOSULFAN
     Indication: Neuroblastoma recurrent
  13. TREOSULFAN [Suspect]
     Active Substance: TREOSULFAN
     Indication: Stem cell transplant
  14. TREOSULFAN [Suspect]
     Active Substance: TREOSULFAN
     Indication: Metastasis
  15. MELPHALAN [Suspect]
     Active Substance: MELPHALAN
     Indication: Neuroblastoma recurrent
  16. MELPHALAN [Suspect]
     Active Substance: MELPHALAN
     Indication: Stem cell transplant
  17. MELPHALAN [Suspect]
     Active Substance: MELPHALAN
     Indication: Metastasis

REACTIONS (4)
  - Leukopenia [Unknown]
  - Neutropenia [Unknown]
  - Off label use [Unknown]
  - Intentional product use issue [Unknown]
